FAERS Safety Report 4703831-3 (Version None)
Quarter: 2005Q2

REPORT INFORMATION
  Report Type: 
  Country: None (occurrence: None)
  Receive Date: 20050630
  Receipt Date: 20050509
  Transmission Date: 20051028
  Serious: No
  Sender: FDA-Public Use
  Company Number: US-GLAXOSMITHKLINE-A0557766A

PATIENT
  Age: 77 Year
  Sex: Male

DRUGS (11)
  1. FLOVENT [Suspect]
     Dosage: 660MCG TWICE PER DAY
     Route: 055
     Dates: start: 20050413
  2. COMBIVENT [Concomitant]
  3. PROVENTIL [Concomitant]
  4. XANAX [Concomitant]
  5. VICODIN [Concomitant]
  6. LEVAQUIN [Concomitant]
  7. CARDIZEM CD [Concomitant]
  8. LANTUS [Concomitant]
  9. HUMALOG [Concomitant]
  10. TESSALON [Concomitant]
  11. PRAVACHOL [Concomitant]

REACTIONS (2)
  - DRUG ADMINISTRATION ERROR [None]
  - PHARMACEUTICAL PRODUCT COMPLAINT [None]
